FAERS Safety Report 20084692 (Version 3)
Quarter: 2022Q3

REPORT INFORMATION
  Report Type: Spontaneous
  Country: US (occurrence: US)
  Receive Date: 20211118
  Receipt Date: 20220703
  Transmission Date: 20221027
  Serious: No
  Sender: FDA-Public Use
  Company Number: US-GLENMARK PHARMACEUTICALS-2021GMK068177

PATIENT

DRUGS (5)
  1. OMEPRAZOLE [Suspect]
     Active Substance: OMEPRAZOLE
     Indication: Gastrooesophageal reflux disease
     Dosage: 1 DOSAGE FORM, OD
     Route: 048
  2. MELOXICAM [Concomitant]
     Active Substance: MELOXICAM
     Indication: Analgesic therapy
     Dosage: 15 MILLIGRAM, OD
     Route: 048
     Dates: start: 2020
  3. ZYRTEC [Concomitant]
     Active Substance: CETIRIZINE HYDROCHLORIDE
     Indication: Hypersensitivity
     Dosage: 10 MILLIGRAM, PRN (AS NEEDED)
     Route: 048
  4. VITAMIN B COMPLEX INJ [Concomitant]
     Indication: Vitamin B12 decreased
     Dosage: ONCE A MONTH
     Route: 065
     Dates: start: 2021
  5. FLONASE [Concomitant]
     Active Substance: FLUTICASONE PROPIONATE
     Indication: Hypersensitivity
     Dosage: 50 MICROGRAM, OD (ONCE A DAY, AS NEEDED)
     Route: 065
     Dates: start: 2020

REACTIONS (3)
  - Dysgeusia [Unknown]
  - Feeling hot [Unknown]
  - Product substitution issue [Unknown]

NARRATIVE: CASE EVENT DATE: 20210927
